FAERS Safety Report 8287603-1 (Version None)
Quarter: 2012Q2

REPORT INFORMATION
  Report Type: 
  Country: None (occurrence: None)
  Receive Date: 20120411
  Receipt Date: 20120326
  Transmission Date: 20120825
  Serious: Yes (Other)
  Sender: FDA-Public Use
  Company Number: FK201201009

PATIENT
  Age: 67 Year
  Sex: Male

DRUGS (5)
  1. DEXAMETHASONE SODIUM PHOSPHATE [Suspect]
     Indication: MULTIPLE MYELOMA
     Dosage: 40 MG, PER DAY: DAYS 1-4 IN CYCLES OF 28 DAYS, UNKNOWN
  2. DRUG PROPHYLAXIS [Suspect]
     Indication: PNEUMOCYSTIS JIROVECI INFECTION
  3. LENALIDOMIDE [Suspect]
     Indication: MULTIPLE MYELOMA
     Dosage: 25 MG, PER DAY: DAYS 1-21, IN CYCLES OF 28 DAYS, UNKNOWN
  4. ERYTHROPOIETIN (ERYTHROPOIETIN) [Suspect]
     Indication: PRODUCT USED FOR UNKNOWN INDICATION
     Dosage: UNKNOWN, UNKNOWN, UNKNOWN
  5. BISPHOSPHONATES (BISPHOSPHONATES) [Suspect]
     Indication: PRODUCT USED FOR UNKNOWN INDICATION
     Dosage: UNKNOWN, UNKNOWN, UNKNOWN

REACTIONS (6)
  - UPPER RESPIRATORY TRACT INFECTION [None]
  - NEUTROPENIA [None]
  - TREATMENT NONCOMPLIANCE [None]
  - BLOOD LACTATE DEHYDROGENASE INCREASED [None]
  - BLOOD ALBUMIN INCREASED [None]
  - ANAEMIA [None]
